FAERS Safety Report 11629084 (Version 4)
Quarter: 2016Q4

REPORT INFORMATION
  Report Type: Spontaneous
  Country: US (occurrence: US)
  Receive Date: 20151014
  Receipt Date: 20161230
  Transmission Date: 20170206
  Serious: Yes (Other)
  Sender: FDA-Public Use
  Company Number: US-PFIZER INC-2015339576

PATIENT
  Age: 76 Year
  Sex: Female
  Weight: 88.45 kg

DRUGS (25)
  1. PREDNISONE. [Concomitant]
     Active Substance: PREDNISONE
     Indication: INFECTION
     Dosage: 30 MG, 1X/DAY
     Route: 048
  2. BACTRIM [Concomitant]
     Active Substance: SULFAMETHOXAZOLE\TRIMETHOPRIM
     Indication: INFECTION
     Dosage: 1 DF, ALTERNATE DAY (MONDAYS, WEDNESDAYS AND FRIDAYS)
  3. NEURONTIN [Concomitant]
     Active Substance: GABAPENTIN
     Indication: NEUROPATHY PERIPHERAL
     Dosage: 300 MG, 3X/DAY
     Route: 048
     Dates: start: 2013
  4. DELTASONE [Concomitant]
     Active Substance: PREDNISONE
     Dosage: 30 MG, DAILY
     Route: 048
  5. BACTRIM DS [Concomitant]
     Active Substance: SULFAMETHOXAZOLE\TRIMETHOPRIM
     Dosage: 1 DF, ALTERNATE DAY [SULFAMETHOXAZOLE 800 MG]/[TRIMETHOPRIM 160 MG] EVERY MONDAY, WEDNESDAY, AND FRI
  6. CALCIUM PLUS D3 [Concomitant]
     Indication: OSTEOPENIA
     Dosage: 1000 MG, 1X/DAY
  7. ATROVENT [Concomitant]
     Active Substance: IPRATROPIUM BROMIDE
     Indication: DYSPNOEA
  8. IPRATROPIUM BROMIDE. [Concomitant]
     Active Substance: IPRATROPIUM BROMIDE
     Dosage: UNK, 3X/DAY
     Route: 048
  9. MELATONIN [Concomitant]
     Active Substance: MELATONIN
     Indication: INSOMNIA
     Dosage: 3 MG, AS NEEDED (NIGHTLY)
     Route: 048
  10. SINGULAIR [Concomitant]
     Active Substance: MONTELUKAST SODIUM
     Indication: ASTHMA
     Dosage: 10 MG, 1X/DAY
     Route: 048
  11. ITRACONAZOLE. [Concomitant]
     Active Substance: ITRACONAZOLE
     Dosage: 200 MG, 2X/DAY
     Route: 048
  12. VALACICLOVIR [Concomitant]
     Active Substance: VALACYCLOVIR HYDROCHLORIDE
     Indication: HERPES ZOSTER
     Dosage: 500 MG, 1X/DAY
  13. GABAPENTIN. [Concomitant]
     Active Substance: GABAPENTIN
     Indication: FEMORAL NERVE PALSY
     Dosage: 300 MG, 3X/DAY
     Route: 048
     Dates: start: 201507
  14. SINGULAIR [Concomitant]
     Active Substance: MONTELUKAST SODIUM
     Indication: HYPERSENSITIVITY
  15. LEVOTHYROXINE. [Concomitant]
     Active Substance: LEVOTHYROXINE
     Indication: THYROID DISORDER
     Dosage: 150 UG, 1X/DAY
  16. SYNTHROID [Concomitant]
     Active Substance: LEVOTHYROXINE SODIUM
     Dosage: 150 UG, DAILY
     Route: 048
  17. VALTREX [Concomitant]
     Active Substance: VALACYCLOVIR HYDROCHLORIDE
     Indication: HERPES ZOSTER
     Dosage: 500 MG, 1X/DAY (EVERY MORNING)
     Route: 048
  18. VFEND [Suspect]
     Active Substance: VORICONAZOLE
     Indication: LUNG INFECTION
     Dosage: 200 MG, 2X/DAY
     Route: 048
  19. GLIPIZIDE. [Concomitant]
     Active Substance: GLIPIZIDE
     Indication: TYPE 2 DIABETES MELLITUS
     Dosage: 1.25 MG, 2X/DAY (1/4 TABLET IN THE MORNING, 1/4 TABLET AT NOON)
  20. ALBUTEROL SULFATE. [Concomitant]
     Active Substance: ALBUTEROL SULFATE
     Indication: DYSPNOEA
     Dosage: UNK, AS NEEDED (1 SPRAY)
     Route: 048
  21. GLUCOTROL [Concomitant]
     Active Substance: GLIPIZIDE
     Dosage: 1.25 MG, 2X/DAY (TAKE IN THE AM AT NOON)
     Route: 048
  22. LEVOTHROID [Concomitant]
     Active Substance: LEVOTHYROXINE SODIUM
     Dosage: 150 UG, DAILY
     Route: 048
  23. VFEND [Suspect]
     Active Substance: VORICONAZOLE
     Indication: ASPERGILLUS INFECTION
     Dosage: 200 MG, 2X/DAY
     Route: 048
  24. ZANTAC [Concomitant]
     Active Substance: RANITIDINE HYDROCHLORIDE
     Indication: GASTROOESOPHAGEAL REFLUX DISEASE
     Dosage: 1 DF, DAILY
  25. ATROVENT [Concomitant]
     Active Substance: IPRATROPIUM BROMIDE
     Indication: WHEEZING
     Dosage: 2.5 ML, AS NEEDED (NEBULIZATION EVERY 6 (SIX) HOURS AS NEEDED)
     Route: 045

REACTIONS (11)
  - Neoplasm malignant [Unknown]
  - Drug dose omission [Unknown]
  - Thrombosis [Unknown]
  - Disease recurrence [Not Recovered/Not Resolved]
  - Pneumonia [Unknown]
  - Product label issue [Unknown]
  - Lower respiratory tract infection bacterial [Unknown]
  - Pulmonary mycosis [Unknown]
  - Circumstance or information capable of leading to medication error [Unknown]
  - Weight increased [Not Recovered/Not Resolved]
  - Aspergillus infection [Not Recovered/Not Resolved]
